FAERS Safety Report 19620440 (Version 3)
Quarter: 2021Q3

REPORT INFORMATION
  Report Type: Report from Study
  Country: GB (occurrence: GB)
  Receive Date: 20210728
  Receipt Date: 20210920
  Transmission Date: 20211014
  Serious: Yes (Other)
  Sender: FDA-Public Use
  Company Number: GB-ROCHE-2872856

PATIENT
  Age: 72 Year
  Sex: Male
  Weight: 79.4 kg

DRUGS (4)
  1. ATEZOLIZUMAB. [Suspect]
     Active Substance: ATEZOLIZUMAB
     Indication: PLEURAL MESOTHELIOMA MALIGNANT
     Dosage: ON 07/APR/2021, HE RECEIVED THE MOST RECENT DOSE OF ATEZOLIZUMAB PRIOR TO SAE.
     Route: 041
     Dates: start: 20200108
  2. BEVACIZUMAB. [Suspect]
     Active Substance: BEVACIZUMAB
     Indication: PLEURAL MESOTHELIOMA MALIGNANT
     Dosage: ON 07/APR/2021, HE RECEIVED THE MOST RECENT DOSE OF BEVACIZUMAB PRIOR TO SAE.
     Route: 042
     Dates: start: 20200108
  3. CARBOPLATIN. [Suspect]
     Active Substance: CARBOPLATIN
     Indication: PLEURAL MESOTHELIOMA MALIGNANT
     Dosage: ON 06/MAY/2020, HE RECEIVED THE MOST RECENT DOSE PRIOR TO AE.
     Route: 042
     Dates: start: 20200108
  4. PEMETREXED. [Suspect]
     Active Substance: PEMETREXED
     Indication: PLEURAL MESOTHELIOMA MALIGNANT
     Dosage: ON 07/APR/2020, HE RECEIVED THE MOST RECENT DOSE OF PEMETREXED PRIOR TO SAE.
     Route: 042
     Dates: start: 20200108

REACTIONS (2)
  - Ill-defined disorder [Unknown]
  - Chronic myeloid leukaemia [Not Recovered/Not Resolved]

NARRATIVE: CASE EVENT DATE: 20210421
